FAERS Safety Report 5856285-8 (Version None)
Quarter: 2008Q3

REPORT INFORMATION
  Report Type: 
  Country: None (occurrence: None)
  Receive Date: 20080825
  Receipt Date: 20080820
  Transmission Date: 20090109
  Serious: Yes (Congenital Anomaly)
  Sender: FDA-Public Use
  Company Number: B0533782A

PATIENT
  Age: 1 Day
  Sex: Male
  Weight: 2.4 kg

DRUGS (3)
  1. PAXIL [Suspect]
     Indication: DEPRESSED MOOD
     Dosage: 40MG PER DAY
     Dates: start: 20070528, end: 20070719
  2. FERROMIA [Concomitant]
  3. UTEMERIN [Concomitant]
     Dates: start: 20071201, end: 20080101

REACTIONS (3)
  - DRUG EXPOSURE DURING PREGNANCY [None]
  - HIP DYSPLASIA [None]
  - MECONIUM STAIN [None]
